FAERS Safety Report 9015034 (Version 1)
Quarter: 2013Q1

REPORT INFORMATION
  Report Type: Spontaneous
  Country: US (occurrence: None)
  Receive Date: 20130109
  Receipt Date: 20130109
  Transmission Date: 20140127
  Serious: Yes (Other)
  Sender: FDA-Public Use
  Company Number: None

PATIENT
  Age: 24 Year
  Sex: Female
  Weight: 52.3 kg

DRUGS (1)
  1. PARAGARD IUD SUPPOSED TO BE HORMONE FREE PARAGARD [Suspect]
     Indication: CONTRACEPTION

REACTIONS (8)
  - Depression [None]
  - Alopecia [None]
  - Weight decreased [None]
  - Fatigue [None]
  - Anxiety [None]
  - Amnesia [None]
  - Mental disorder [None]
  - Allergy to metals [None]
